FAERS Safety Report 9350014 (Version 1)
Quarter: 2013Q2

REPORT INFORMATION
  Report Type: Report from Study
  Country: ZA (occurrence: ZA)
  Receive Date: 20130614
  Receipt Date: 20130614
  Transmission Date: 20140414
  Serious: Yes (Death)
  Sender: FDA-Public Use
  Company Number: ZA-ROCHE-1237072

PATIENT
  Age: 74 Year
  Sex: Male

DRUGS (4)
  1. MIRCERA [Suspect]
     Indication: PRODUCT USED FOR UNKNOWN INDICATION
     Route: 065
     Dates: start: 20130429
  2. MIRCERA [Suspect]
     Dosage: ONCE PER MONTH
     Route: 065
     Dates: start: 201302
  3. MIRCERA [Suspect]
     Route: 065
  4. VENOFER [Concomitant]

REACTIONS (1)
  - Death [Fatal]
